FAERS Safety Report 14264130 (Version 1)
Quarter: 2017Q4

REPORT INFORMATION
  Report Type: Spontaneous
  Country: US (occurrence: US)
  Receive Date: 20171208
  Receipt Date: 20171208
  Transmission Date: 20180321
  Serious: No
  Sender: FDA-Public Use
  Company Number: US-VIFOR (INTERNATIONAL) INC.-VIT-2017-00357

PATIENT
  Age: 77 Year
  Sex: Male

DRUGS (20)
  1. BUMETANIDE. [Concomitant]
     Active Substance: BUMETANIDE
  2. PRESERVISION AREDS [Concomitant]
     Active Substance: MINERALS\VITAMINS
  3. MAGNESIUM HYDROXIDE. [Concomitant]
     Active Substance: MAGNESIUM HYDROXIDE
  4. ALLOPURINOL. [Concomitant]
     Active Substance: ALLOPURINOL
  5. VELTASSA [Suspect]
     Active Substance: PATIROMER
     Route: 048
     Dates: start: 20170421
  6. BUDESONIDE. [Concomitant]
     Active Substance: BUDESONIDE
  7. MAGNESIUM OXIDE. [Concomitant]
     Active Substance: MAGNESIUM OXIDE
  8. TYLENOL PM EXTRA STRENGTH [Concomitant]
     Active Substance: ACETAMINOPHEN\DIPHENHYDRAMINE HYDROCHLORIDE
  9. ASPIRIN. [Concomitant]
     Active Substance: ASPIRIN
  10. FOLIC ACID. [Concomitant]
     Active Substance: FOLIC ACID
  11. NIACIN. [Concomitant]
     Active Substance: NIACIN
  12. IPRATROPIUM BROMIDE/SALBUTAMOL SULFATE [Concomitant]
  13. CYANOCOBALAMIN. [Concomitant]
     Active Substance: CYANOCOBALAMIN
  14. GLIPIZIDE. [Concomitant]
     Active Substance: GLIPIZIDE
  15. VELTASSA [Suspect]
     Active Substance: PATIROMER
     Indication: HYPERKALAEMIA
     Route: 048
     Dates: start: 20161216
  16. ATENOLOL. [Concomitant]
     Active Substance: ATENOLOL
  17. FERROUS SULFATE. [Concomitant]
     Active Substance: FERROUS SULFATE
  18. GABAPENTIN. [Concomitant]
     Active Substance: GABAPENTIN
  19. MICONAZOLE NITRATE. [Concomitant]
     Active Substance: MICONAZOLE NITRATE
  20. COLECALCIFEROL [Concomitant]
     Active Substance: CHOLECALCIFEROL

REACTIONS (2)
  - Off label use [Unknown]
  - Constipation [Not Recovered/Not Resolved]

NARRATIVE: CASE EVENT DATE: 201612
